FAERS Safety Report 8019204-4 (Version None)
Quarter: 2012Q1

REPORT INFORMATION
  Report Type: 
  Country: None (occurrence: None)
  Receive Date: 20120103
  Receipt Date: 20111229
  Transmission Date: 20120608
  Serious: No
  Sender: FDA-Public Use
  Company Number: US-BAYER-2011-124570

PATIENT
  Age: 2 Year
  Sex: Female

DRUGS (1)
  1. BEYAZ [Suspect]
     Dosage: 2 DF, ONCE
     Route: 048
     Dates: start: 20111201, end: 20111201

REACTIONS (1)
  - NO ADVERSE EVENT [None]
